FAERS Safety Report 9863865 (Version 3)
Quarter: 2014Q1

REPORT INFORMATION
  Report Type: Spontaneous
  Country: JP (occurrence: JP)
  Receive Date: 20140203
  Receipt Date: 20140212
  Transmission Date: 20141002
  Serious: Yes (Hospitalization)
  Sender: FDA-Public Use
  Company Number: JP-GLAXOSMITHKLINE-B0952504A

PATIENT
  Age: 85 Year
  Sex: Male
  Weight: 62 kg

DRUGS (4)
  1. ALLERMIST [Suspect]
     Indication: RHINITIS ALLERGIC
     Dosage: 55MCG PER DAY
     Route: 045
     Dates: start: 20131106, end: 20131120
  2. FLUTICASONE [Concomitant]
     Indication: RHINITIS ALLERGIC
     Dosage: 50MCG TWICE PER DAY
     Route: 045
     Dates: start: 20130806, end: 20130916
  3. NASONEX [Concomitant]
     Indication: RHINITIS ALLERGIC
     Dosage: 100MCG PER DAY
     Route: 045
     Dates: start: 20130917, end: 20131105
  4. SUPLATAST TOSILATE [Concomitant]
     Indication: RHINITIS ALLERGIC
     Dosage: 100MG THREE TIMES PER DAY
     Route: 048
     Dates: start: 20131106, end: 20131120

REACTIONS (12)
  - Hepatitis B [Recovered/Resolved]
  - Hepatic mass [Recovering/Resolving]
  - Gallbladder enlargement [Recovering/Resolving]
  - Cholecystitis [Recovering/Resolving]
  - Nephrolithiasis [Recovering/Resolving]
  - Gallbladder disorder [Recovering/Resolving]
  - Jaundice [Recovering/Resolving]
  - Hepatic cyst [Recovering/Resolving]
  - Diverticulum [Recovering/Resolving]
  - Liver disorder [Recovering/Resolving]
  - Vascular calcification [Recovering/Resolving]
  - Arteriosclerosis [Recovering/Resolving]
